FAERS Safety Report 17373163 (Version 1)
Quarter: 2020Q1

REPORT INFORMATION
  Report Type: Spontaneous
  Country: US (occurrence: US)
  Receive Date: 20200204
  Receipt Date: 20200204
  Transmission Date: 20200409
  Serious: Yes (Hospitalization)
  Sender: FDA-Public Use
  Company Number: None

PATIENT
  Age: 19 Year
  Sex: Female

DRUGS (3)
  1. FLOVENT, BUSPIRONE, REXULTI [Concomitant]
  2. FEROSUL, PANTOPRAZOLE, ESCITALOPRAM, BUDESONIDE [Concomitant]
  3. STELARA [Suspect]
     Active Substance: USTEKINUMAB
     Indication: CROHN^S DISEASE
     Dosage: ?          OTHER FREQUENCY:EVERY 8 WEEKS;?
     Route: 058
     Dates: start: 20190507

REACTIONS (1)
  - Ileostomy [None]

NARRATIVE: CASE EVENT DATE: 20191209
